FAERS Safety Report 18210404 (Version 4)
Quarter: 2021Q1

REPORT INFORMATION
  Report Type: Report from Study
  Country: US (occurrence: US)
  Receive Date: 20200829
  Receipt Date: 20210310
  Transmission Date: 20210419
  Serious: Yes (Hospitalization)
  Sender: FDA-Public Use
  Company Number: NVSC2020US235456

PATIENT
  Age: 56 Year
  Sex: Female

DRUGS (3)
  1. ENTRESTO [Suspect]
     Active Substance: SACUBITRIL\VALSARTAN
     Indication: PRODUCT USED FOR UNKNOWN INDICATION
     Dosage: 100 MG (49MG/51MG), BID
     Route: 048
     Dates: start: 2018
  2. ISOSORBIDE. [Suspect]
     Active Substance: ISOSORBIDE
     Indication: PRODUCT USED FOR UNKNOWN INDICATION
     Dosage: UNK, UNKNOWN
     Route: 065
  3. ISOSORBIDE. [Suspect]
     Active Substance: ISOSORBIDE
     Dosage: UNK, UNKNOWN (DOSE INCREASED)
     Route: 065

REACTIONS (4)
  - Cardiac failure [Unknown]
  - Pruritus [Not Recovered/Not Resolved]
  - Sleep apnoea syndrome [Unknown]
  - Decreased appetite [Unknown]

NARRATIVE: CASE EVENT DATE: 20200726
